FAERS Safety Report 5018444-6 (Version None)
Quarter: 2006Q2

REPORT INFORMATION
  Report Type: 
  Country: None (occurrence: None)
  Receive Date: 20060530
  Receipt Date: 20050602
  Transmission Date: 20061013
  Serious: Yes (Hospitalization)
  Sender: FDA-Public Use
  Company Number: 2005083561

PATIENT
  Sex: Female

DRUGS (3)
  1. LYRICA [Suspect]
     Indication: ILL-DEFINED DISORDER
     Dosage: ORAL
     Route: 048
  2. CARBAMAZEPINE [Concomitant]
  3. TOPAMAX [Concomitant]

REACTIONS (1)
  - ANOREXIA [None]
